FAERS Safety Report 5901110-X (Version None)
Quarter: 2008Q3

REPORT INFORMATION
  Report Type: 
  Country: None (occurrence: None)
  Receive Date: 20080929
  Receipt Date: 20071011
  Transmission Date: 20090109
  Serious: No
  Sender: FDA-Public Use
  Company Number: US-BAYER-200713040BWH

PATIENT
  Age: 71 Year
  Sex: Female

DRUGS (3)
  1. AVELOX [Suspect]
     Indication: ATELECTASIS
     Route: 042
     Dates: start: 20070812, end: 20070821
  2. ZOSYN [Concomitant]
     Dates: start: 20070731, end: 20070818
  3. NITROFURANTOIN [Concomitant]
     Route: 048
     Dates: start: 20070824, end: 20070830

REACTIONS (1)
  - PATHOGEN RESISTANCE [None]
